FAERS Safety Report 6039263-8 (Version None)
Quarter: 2009Q1

REPORT INFORMATION
  Report Type: 
  Country: None (occurrence: None)
  Receive Date: 20090115
  Receipt Date: 20090107
  Transmission Date: 20090719
  Serious: Yes (Other)
  Sender: FDA-Public Use
  Company Number: PHEH2009US00553

PATIENT
  Sex: Male

DRUGS (5)
  1. ZOMETA [Suspect]
     Indication: PROSTATE CANCER METASTATIC
     Dosage: 4 MG MONTHLY
     Route: 042
     Dates: start: 20061001, end: 20070501
  2. ANTINEOPLASTIC AGENTS [Concomitant]
  3. RADIATION [Concomitant]
  4. LUPRON [Concomitant]
  5. ATIVAN [Concomitant]

REACTIONS (3)
  - BONE DISORDER [None]
  - DENTAL FISTULA [None]
  - EDENTULOUS [None]
